FAERS Safety Report 23923701 (Version 2)
Quarter: 2024Q4

REPORT INFORMATION
  Report Type: Spontaneous
  Country: JP (occurrence: JP)
  Receive Date: 20240531
  Receipt Date: 20241030
  Transmission Date: 20250115
  Serious: Yes (Other)
  Sender: RANBAXY
  Company Number: JP-SUN PHARMACEUTICAL INDUSTRIES LTD-2024R1-430308

PATIENT
  Age: 26 Year
  Sex: Female

DRUGS (14)
  1. QUETIAPINE [Suspect]
     Active Substance: QUETIAPINE
     Indication: Behaviour disorder
     Dosage: 225 MILLIGRAM, DAILY
     Route: 065
  2. QUETIAPINE [Suspect]
     Active Substance: QUETIAPINE
     Indication: Epilepsy
  3. VALPROIC ACID [Suspect]
     Active Substance: VALPROIC ACID
     Indication: Epilepsy
     Dosage: 1600 MILLIGRAM, DAILY
     Route: 065
  4. VALPROIC ACID [Suspect]
     Active Substance: VALPROIC ACID
     Indication: Behaviour disorder
  5. RISPERIDONE [Concomitant]
     Active Substance: RISPERIDONE
     Indication: Behaviour disorder
     Dosage: 2 MILLIGRAM, DAILY
     Route: 065
  6. RISPERIDONE [Concomitant]
     Active Substance: RISPERIDONE
     Indication: Epilepsy
  7. CHLORPROMAZINE [Concomitant]
     Active Substance: CHLORPROMAZINE
     Indication: Behaviour disorder
     Dosage: 40 MILLIGRAM, DAILY
     Route: 065
  8. CHLORPROMAZINE [Concomitant]
     Active Substance: CHLORPROMAZINE
     Indication: Epilepsy
  9. TOPIRAMATE [Concomitant]
     Active Substance: TOPIRAMATE
     Indication: Behaviour disorder
     Dosage: 200 MILLIGRAM, DAILY
     Route: 065
  10. TOPIRAMATE [Concomitant]
     Active Substance: TOPIRAMATE
     Indication: Epilepsy
  11. RAMELTEON [Concomitant]
     Active Substance: RAMELTEON
     Indication: Behaviour disorder
     Dosage: 8 MILLIGRAM, DAILY
     Route: 065
  12. RAMELTEON [Concomitant]
     Active Substance: RAMELTEON
     Indication: Epilepsy
  13. SUVOREXANT [Concomitant]
     Active Substance: SUVOREXANT
     Indication: Behaviour disorder
     Dosage: 15 MILLIGRAM, DAILY
     Route: 065
  14. SUVOREXANT [Concomitant]
     Active Substance: SUVOREXANT
     Indication: Epilepsy

REACTIONS (1)
  - Hypothyroidism [Recovered/Resolved]
